FAERS Safety Report 21112167 (Version 2)
Quarter: 2022Q3

REPORT INFORMATION
  Report Type: Report from Study
  Country: BR (occurrence: BR)
  Receive Date: 20220721
  Receipt Date: 20220813
  Transmission Date: 20221026
  Serious: Yes (Other)
  Sender: FDA-Public Use
  Company Number: BR-JNJFOC-20180523627

PATIENT
  Age: 2 Decade
  Sex: Female
  Weight: 22 kg

DRUGS (6)
  1. INFLIXIMAB [Suspect]
     Active Substance: INFLIXIMAB
     Indication: Crohn^s disease
     Route: 041
     Dates: start: 2011
  2. ERGOCALCIFEROL [Concomitant]
     Active Substance: ERGOCALCIFEROL
  3. UNSPECIFIED INGREDIENT [Concomitant]
     Active Substance: UNSPECIFIED INGREDIENT
  4. PREDNISONE [Concomitant]
     Active Substance: PREDNISONE
  5. AZATHIOPRINE [Concomitant]
     Active Substance: AZATHIOPRINE
  6. CALCIUM BICARBONATE [Concomitant]
     Active Substance: CALCIUM BICARBONATE

REACTIONS (5)
  - Crohn^s disease [Recovered/Resolved]
  - Drug ineffective [Recovered/Resolved]
  - Anogenital warts [Recovered/Resolved]
  - Anaemia [Unknown]
  - Off label use [Unknown]

NARRATIVE: CASE EVENT DATE: 20170101
